FAERS Safety Report 21697219 (Version 2)
Quarter: 2023Q1

REPORT INFORMATION
  Report Type: Spontaneous
  Country: JP (occurrence: JP)
  Receive Date: 20221208
  Receipt Date: 20230205
  Transmission Date: 20230417
  Serious: Yes (Hospitalization)
  Sender: FDA-Public Use
  Company Number: JP-ONO-2022JP019361

PATIENT
  Age: 75 Year
  Sex: Male
  Weight: 54 kg

DRUGS (9)
  1. FOSAPREPITANT DIMEGLUMINE [Suspect]
     Active Substance: FOSAPREPITANT DIMEGLUMINE
     Dosage: 150 MG
     Route: 041
     Dates: start: 20220502, end: 20220530
  2. OPDIVO [Suspect]
     Active Substance: NIVOLUMAB
     Indication: Gastric cancer
     Dosage: 240 MG
     Route: 041
     Dates: start: 20220530, end: 20220530
  3. ANAMORELIN HYDROCHLORIDE [Suspect]
     Active Substance: ANAMORELIN HYDROCHLORIDE
     Indication: Cachexia
     Dosage: 100 MG, EVERYDAY
     Route: 048
     Dates: start: 20220523
  4. OXALIPLATIN [Suspect]
     Active Substance: OXALIPLATIN
     Indication: Gastric cancer
     Dosage: 125 UNK
     Route: 041
     Dates: start: 20220411, end: 20220530
  5. GIMERACIL\OTERACIL\TEGAFUR [Suspect]
     Active Substance: GIMERACIL\OTERACIL\TEGAFUR
     Indication: Gastric cancer
     Dosage: 100 UNK
     Route: 048
     Dates: start: 20220411, end: 20220614
  6. PALONOSETRON [Suspect]
     Active Substance: PALONOSETRON
     Indication: Prophylaxis
     Dosage: 0.75 MG
     Route: 041
     Dates: start: 20220411, end: 20220530
  7. DEXAMETHASONE SODIUM PHOSPHATE [Concomitant]
     Active Substance: DEXAMETHASONE SODIUM PHOSPHATE
     Indication: Prophylaxis
     Dosage: 9.9 MG, EVERYDAY
     Route: 041
     Dates: start: 20220411
  8. DECADRON [Concomitant]
     Active Substance: DEXAMETHASONE
     Indication: Prophylaxis
     Dosage: 4 DF, EVERYDAY
     Route: 048
     Dates: start: 20220411, end: 20220602
  9. ZYPREXA [Concomitant]
     Active Substance: OLANZAPINE
     Indication: Prophylaxis
     Dosage: 5 MG, EVERYDAY
     Route: 048
     Dates: start: 20220411, end: 20220602

REACTIONS (1)
  - Gait disturbance [Recovering/Resolving]

NARRATIVE: CASE EVENT DATE: 20220620
